FAERS Safety Report 19888292 (Version 4)
Quarter: 2022Q4

REPORT INFORMATION
  Report Type: Report from Study
  Country: JP (occurrence: JP)
  Receive Date: 20210927
  Receipt Date: 20221024
  Transmission Date: 20230113
  Serious: Yes (Death, Other)
  Sender: FDA-Public Use
  Company Number: JP-NOVARTISPH-NVSJ2021JP014140

PATIENT
  Age: 70 Year
  Sex: Male

DRUGS (2)
  1. TABRECTA [Suspect]
     Active Substance: CAPMATINIB
     Indication: Non-small cell lung cancer
     Dosage: 800 MG
     Route: 048
     Dates: start: 20210914, end: 20210920
  2. TABRECTA [Suspect]
     Active Substance: CAPMATINIB
     Dosage: 800 MG
     Route: 048
     Dates: start: 20210922, end: 20220503

REACTIONS (3)
  - Non-small cell lung cancer [Fatal]
  - Malignant neoplasm progression [Fatal]
  - Delirium [Recovered/Resolved]

NARRATIVE: CASE EVENT DATE: 20210919
